FAERS Safety Report 13036256 (Version 1)
Quarter: 2016Q4

REPORT INFORMATION
  Report Type: Spontaneous
  Country: GB (occurrence: GB)
  Receive Date: 20161216
  Receipt Date: 20161216
  Transmission Date: 20170207
  Serious: Yes (Disabling, Other)
  Sender: FDA-Public Use
  Company Number: GB-TEVA-719684ACC

PATIENT
  Age: 57 Year
  Sex: Female
  Weight: 40.45 kg

DRUGS (9)
  1. PARACETAMOL [Concomitant]
     Active Substance: ACETAMINOPHEN
     Dosage: THREE TIMES A DAY
     Dates: start: 20161027
  2. TIOTROPIUM BROMIDE [Concomitant]
     Active Substance: TIOTROPIUM BROMIDE
     Dosage: 18 MICROGRAM DAILY;
     Route: 055
     Dates: start: 20160902, end: 20161101
  3. FERROUS SULFATE. [Concomitant]
     Active Substance: FERROUS SULFATE
     Dosage: 600 MILLIGRAM DAILY;
     Dates: start: 20161027
  4. RANITIDINE. [Concomitant]
     Active Substance: RANITIDINE
     Dosage: 150 MILLIGRAM DAILY; EVERY MORNING.
     Dates: start: 20161027
  5. RISPERIDONE. [Concomitant]
     Active Substance: RISPERIDONE
     Dosage: 2 MILLIGRAM DAILY; AT NIGHT.
     Dates: start: 20160902, end: 20160930
  6. MIRTAZAPINE. [Suspect]
     Active Substance: MIRTAZAPINE
     Indication: CHRONIC DISEASE
     Dosage: 30 MILLIGRAM DAILY; AT NIGHT.
     Route: 048
  7. FULTIUM-D3 [Concomitant]
     Dosage: 800 IU (INTERNATIONAL UNIT) DAILY;
     Dates: start: 20161027
  8. RISPERIDONE. [Concomitant]
     Active Substance: RISPERIDONE
     Dosage: 4 MILLIGRAM DAILY;
     Dates: start: 20160930
  9. VENTOLIN [Concomitant]
     Active Substance: ALBUTEROL SULFATE
     Dosage: 1 TO 2 PUFFS UP TO FOUR TIMES DAILY AS REQUIRED.
     Route: 055
     Dates: start: 20160902

REACTIONS (3)
  - Hyponatraemia [Recovering/Resolving]
  - Lethargy [Recovering/Resolving]
  - Confusional state [Recovering/Resolving]

NARRATIVE: CASE EVENT DATE: 20160925
